FAERS Safety Report 8989005 (Version 2)
Quarter: 2013Q2

REPORT INFORMATION
  Report Type: Spontaneous
  Country: US (occurrence: US)
  Receive Date: 20121228
  Receipt Date: 20130508
  Transmission Date: 20140414
  Serious: Yes (Other)
  Sender: FDA-Public Use
  Company Number: PHHY2012US119231

PATIENT
  Sex: 0

DRUGS (2)
  1. CICLOSPORIN [Suspect]
     Indication: IMMUNOSUPPRESSION
  2. PREDNISONE [Concomitant]
     Indication: RENAL TRANSPLANT

REACTIONS (7)
  - Rheumatoid arthritis [Unknown]
  - Post transplant lymphoproliferative disorder [Unknown]
  - Epstein-Barr virus infection [Unknown]
  - Skin mass [Unknown]
  - Rash papular [Unknown]
  - Skin plaque [Unknown]
  - Skin lesion [Recovering/Resolving]
